FAERS Safety Report 17910114 (Version 1)
Quarter: 2020Q2

REPORT INFORMATION
  Report Type: Report from Study
  Country: CA (occurrence: CA)
  Receive Date: 20200617
  Receipt Date: 20200617
  Transmission Date: 20200714
  Serious: Yes (Other)
  Sender: FDA-Public Use
  Company Number: CA-SAMSUNG BIOEPIS-SB-2020-19673

PATIENT
  Age: 11 Year
  Sex: Female
  Weight: 29 kg

DRUGS (1)
  1. RENFLEXIS [Suspect]
     Active Substance: INFLIXIMAB-ABDA
     Indication: CROHN^S DISEASE
     Route: 042
     Dates: start: 20191004, end: 20200605

REACTIONS (10)
  - Cough [Unknown]
  - Exophthalmos [Unknown]
  - Cyanosis [Unknown]
  - Product use issue [Unknown]
  - Heart rate increased [Unknown]
  - Vomiting [Unknown]
  - Lacrimation increased [Unknown]
  - Blood pressure increased [Unknown]
  - Erythema [Unknown]
  - Oxygen saturation decreased [Unknown]

NARRATIVE: CASE EVENT DATE: 20200605
